FAERS Safety Report 9244017 (Version 1)
Quarter: 2013Q1

REPORT INFORMATION
  Report Type: Spontaneous
  Country: US (occurrence: None)
  Receive Date: 20121123
  Receipt Date: 20121123
  Transmission Date: 20140127
  Serious: No
  Sender: FDA-Public Use
  Company Number: 357322

PATIENT
  Age: 69 Year
  Sex: Male

DRUGS (3)
  1. VICTOZA [Suspect]
     Indication: TYPE 2 DIABETES MELLITUS
     Dates: end: 2012
  2. METFORMIN (METFORMIN) [Concomitant]
  3. DIPEPTIDYL PEPTIDASE 4 (DPP-4)INHIBITORS [Concomitant]

REACTIONS (1)
  - Blood creatine increased [None]
